FAERS Safety Report 14313058 (Version 1)
Quarter: 2017Q4

REPORT INFORMATION
  Report Type: Spontaneous
  Country: IT (occurrence: IT)
  Receive Date: 20171221
  Receipt Date: 20171221
  Transmission Date: 20180321
  Serious: Yes (Life-Threatening, Hospitalization)
  Sender: FDA-Public Use
  Company Number: IT-CIPLA LTD.-2017IT23690

PATIENT

DRUGS (7)
  1. FOLINIC ACID [Suspect]
     Active Substance: LEUCOVORIN
     Indication: COLORECTAL CANCER METASTATIC
     Dosage: 695.4 MG, TOTAL
     Route: 041
     Dates: start: 20160125, end: 20160125
  2. FLUOROURACIL. [Suspect]
     Active Substance: FLUOROURACIL
     Indication: COLORECTAL CANCER METASTATIC
     Dosage: 4868 MG, TOTAL
     Route: 041
     Dates: start: 20160125, end: 20160125
  3. FLUOROURACIL. [Suspect]
     Active Substance: FLUOROURACIL
     Dosage: 4868 MG, TOTAL
     Route: 041
     Dates: start: 20160223, end: 20160223
  4. AFLIBERCEPT [Suspect]
     Active Substance: AFLIBERCEPT
     Indication: COLORECTAL CANCER METASTATIC
     Dosage: 260 MG, TOTAL
     Route: 041
     Dates: start: 20160223, end: 20160223
  5. RACECADOTRIL [Concomitant]
     Active Substance: RACECADOTRIL
     Indication: PRODUCT USED FOR UNKNOWN INDICATION
     Dosage: UNK
     Route: 065
  6. FOLINIC ACID [Suspect]
     Active Substance: LEUCOVORIN
     Dosage: 695.4 MG, TOTAL
     Route: 041
     Dates: start: 20160223, end: 20160223
  7. IRINOTECAN [Suspect]
     Active Substance: IRINOTECAN
     Indication: COLORECTAL CANCER METASTATIC
     Dosage: 312.9 MG, TOTAL
     Route: 041
     Dates: start: 20160223, end: 20160223

REACTIONS (6)
  - Neuropathy peripheral [Recovered/Resolved]
  - Asthenia [Unknown]
  - Abdominal pain [Recovered/Resolved]
  - Anaemia [Unknown]
  - Dysgeusia [Recovered/Resolved]
  - Diarrhoea [Recovered/Resolved]

NARRATIVE: CASE EVENT DATE: 20160307
